FAERS Safety Report 23980779 (Version 2)
Quarter: 2024Q2

REPORT INFORMATION
  Report Type: Spontaneous
  Country: US (occurrence: US)
  Receive Date: 20240617
  Receipt Date: 20240628
  Transmission Date: 20240716
  Serious: Yes (Hospitalization)
  Sender: FDA-Public Use
  Company Number: US-CYCLE PHARMACEUTICALS LTD-2024-CYC-000066

PATIENT

DRUGS (4)
  1. NITYR [Suspect]
     Active Substance: NITISINONE
     Indication: Tyrosinaemia
     Dosage: 5 MG, BID
     Route: 048
     Dates: start: 202302
  2. NITYR [Suspect]
     Active Substance: NITISINONE
     Dosage: 50 MG, QD
     Route: 048
     Dates: start: 202311
  3. NITYR [Suspect]
     Active Substance: NITISINONE
     Indication: Tyrosinaemia
     Dosage: 20 MG, BID
     Route: 048
     Dates: start: 20230211
  4. NITYR [Suspect]
     Active Substance: NITISINONE
     Dosage: 50 MG, QD
     Route: 048
     Dates: start: 202311

REACTIONS (5)
  - Blood creatine phosphokinase increased [Not Recovered/Not Resolved]
  - Heavy menstrual bleeding [Unknown]
  - Red blood cell count decreased [Unknown]
  - White blood cell count decreased [Unknown]
  - Epistaxis [Unknown]

NARRATIVE: CASE EVENT DATE: 20240301
